FAERS Safety Report 15476113 (Version 3)
Quarter: 2020Q1

REPORT INFORMATION
  Report Type: Spontaneous
  Country: ES (occurrence: ES)
  Receive Date: 20181009
  Receipt Date: 20200228
  Transmission Date: 20200409
  Serious: Yes (Death, Hospitalization, Other)
  Sender: FDA-Public Use
  Company Number: PHHY2018ES113518

PATIENT
  Age: 64 Year
  Sex: Female

DRUGS (2)
  1. LENALIDOMIDE [Suspect]
     Active Substance: LENALIDOMIDE
     Indication: PLASMA CELL MYELOMA
     Dosage: UNK
     Route: 048
  2. DEXAMETHASONE. [Suspect]
     Active Substance: DEXAMETHASONE
     Indication: PLASMA CELL MYELOMA
     Dosage: UNK
     Route: 065

REACTIONS (15)
  - Toxicity to various agents [Recovering/Resolving]
  - Bradykinesia [Fatal]
  - Cogwheel rigidity [Fatal]
  - Confusional state [Fatal]
  - Waxy flexibility [Fatal]
  - Agitation [Fatal]
  - Parkinsonism [Fatal]
  - Amnesia [Fatal]
  - Gait disturbance [Fatal]
  - Dementia [Fatal]
  - Hallucination, visual [Fatal]
  - Dystonia [Fatal]
  - Prion disease [Recovering/Resolving]
  - Product use in unapproved indication [Unknown]
  - Creutzfeldt-Jakob disease [Fatal]
